FAERS Safety Report 9400006 (Version 1)
Quarter: 2013Q3

REPORT INFORMATION
  Report Type: Spontaneous
  Country: US (occurrence: US)
  Receive Date: 20130715
  Receipt Date: 20130715
  Transmission Date: 20140515
  Serious: No
  Sender: FDA-Public Use
  Company Number: US-BAYER-2013-084781

PATIENT
  Age: 77 Year
  Sex: Male
  Weight: 94.33 kg

DRUGS (2)
  1. ALEVE CAPLET [Suspect]
     Dosage: 2 DF, UNK
     Dates: start: 2003
  2. BAYER ASPIRIN REGIMEN ADULT LOW STRENGTH [Suspect]
     Dosage: 1 DF, QD
     Route: 048
     Dates: start: 2006, end: 2011

REACTIONS (1)
  - Contusion [Not Recovered/Not Resolved]
